FAERS Safety Report 12587574 (Version 1)
Quarter: 2016Q3

REPORT INFORMATION
  Report Type: Spontaneous
  Country: GB (occurrence: GB)
  Receive Date: 20160725
  Receipt Date: 20160725
  Transmission Date: 20161109
  Serious: Yes (Other)
  Sender: FDA-Public Use
  Company Number: GB-GLAXOSMITHKLINE-GB2016GSK106669

PATIENT
  Sex: Female

DRUGS (6)
  1. ZYBAN [Suspect]
     Active Substance: BUPROPION HYDROCHLORIDE
     Indication: ANXIETY
     Dosage: 150 MG, BID
     Dates: start: 2011, end: 2013
  2. ZYBAN [Suspect]
     Active Substance: BUPROPION HYDROCHLORIDE
     Indication: STRESS
     Dosage: 150 MG, BID
     Dates: start: 2014, end: 2015
  3. ZYBAN [Suspect]
     Active Substance: BUPROPION HYDROCHLORIDE
     Indication: DEPRESSION
  4. SEROXAT [Concomitant]
     Active Substance: PAROXETINE HYDROCHLORIDE
  5. WARFARIN [Concomitant]
     Active Substance: WARFARIN
  6. ZYBAN [Suspect]
     Active Substance: BUPROPION HYDROCHLORIDE
     Indication: SMOKING CESSATION THERAPY

REACTIONS (4)
  - Constipation [Recovered/Resolved]
  - Off label use [Unknown]
  - Atrial fibrillation [Not Recovered/Not Resolved]
  - Overdose [Unknown]
